FAERS Safety Report 4496816-6 (Version None)
Quarter: 2004Q4

REPORT INFORMATION
  Report Type: 
  Country: None (occurrence: None)
  Receive Date: 20041109
  Receipt Date: 20041014
  Transmission Date: 20050328
  Serious: Yes (Hospitalization)
  Sender: FDA-Public Use
  Company Number: PHEH2004US11072

PATIENT
  Sex: Female

DRUGS (1)
  1. EXELON [Suspect]
     Dates: start: 19970101

REACTIONS (4)
  - DUODENAL ULCER [None]
  - GASTROENTERITIS VIRAL [None]
  - INTERNATIONAL NORMALISED RATIO INCREASED [None]
  - SMALL INTESTINAL HAEMORRHAGE [None]
